FAERS Safety Report 9753015 (Version 1)
Quarter: 2013Q4

REPORT INFORMATION
  Report Type: Spontaneous
  Country: US (occurrence: None)
  Receive Date: 20131211
  Receipt Date: 20131211
  Transmission Date: 20140711
  Serious: Yes (Other)
  Sender: FDA-Public Use
  Company Number: 1290768

PATIENT
  Age: 64 Year
  Sex: Male
  Weight: 80.74 kg

DRUGS (1)
  1. NOSTRILLA [Suspect]
     Indication: NASAL CONGESTION
     Dosage: SPRAYED IN NOSTRILS
     Dates: start: 20131026, end: 20131126

REACTIONS (1)
  - Rhinorrhoea [None]
